FAERS Safety Report 10811081 (Version 1)
Quarter: 2015Q1

REPORT INFORMATION
  Report Type: Spontaneous
  Country: US (occurrence: None)
  Receive Date: 20150213
  Receipt Date: 20150213
  Transmission Date: 20150721
  Serious: Yes (Disabling)
  Sender: FDA-Public Use
  Company Number: None

PATIENT
  Age: 46 Year
  Sex: Female
  Weight: 56.25 kg

DRUGS (8)
  1. Z PAC [Concomitant]
  2. JUVEDERM [Suspect]
     Active Substance: HYALURONIC ACID
     Dates: start: 20150106
  3. MAGNESIUM [Concomitant]
     Active Substance: MAGNESIUM
  4. NASAL SPRAY [Concomitant]
     Active Substance: UNSPECIFIED INGREDIENT
  5. BOTOX [Suspect]
     Active Substance: ONABOTULINUMTOXINA
     Dosage: 1 SYRING JUVADERM ?18 CC BOTOX
     Dates: start: 20150106
  6. INHALER [Concomitant]
     Active Substance: UNSPECIFIED INGREDIENT
  7. VITAMIN C [Concomitant]
     Active Substance: ASCORBIC ACID
  8. ADVIL [Concomitant]
     Active Substance: IBUPROFEN

REACTIONS (14)
  - Anxiety [None]
  - Respiratory disorder [None]
  - Vision blurred [None]
  - Dizziness [None]
  - Feeling abnormal [None]
  - Headache [None]
  - Impaired work ability [None]
  - Paranasal sinus discomfort [None]
  - Dyspnoea [None]
  - Discomfort [None]
  - Muscular weakness [None]
  - Confusional state [None]
  - Chest discomfort [None]
  - Weight decreased [None]

NARRATIVE: CASE EVENT DATE: 20150108
